FAERS Safety Report 23996153 (Version 1)
Quarter: 2024Q2

REPORT INFORMATION
  Report Type: Spontaneous
  Country: US (occurrence: US)
  Receive Date: 20240620
  Receipt Date: 20240620
  Transmission Date: 20240717
  Serious: No
  Sender: FDA-Public Use
  Company Number: US-PFIZER INC-202400196894

PATIENT
  Sex: Male

DRUGS (1)
  1. RITLECITINIB [Suspect]
     Active Substance: RITLECITINIB
     Indication: Alopecia areata
     Dosage: 50 MG EVERY DAY MONDAY-THURSDAY; NO DRUG FRIDAY-SUNDAY

REACTIONS (3)
  - Cushingoid [Unknown]
  - Off label use [Unknown]
  - Off label use [Unknown]
